FAERS Safety Report 4618739-1 (Version None)
Quarter: 2005Q1

REPORT INFORMATION
  Report Type: 
  Country: None (occurrence: None)
  Receive Date: 20050323
  Receipt Date: 20050308
  Transmission Date: 20050727
  Serious: Yes (Hospitalization)
  Sender: FDA-Public Use
  Company Number: 2005BI003164

PATIENT
  Age: 61 Year
  Sex: Male

DRUGS (2)
  1. AVONEX [Suspect]
     Indication: MULTIPLE SCLEROSIS
     Dosage: 30 UQ; QW; IM
     Route: 030
     Dates: start: 19990101
  2. AVONEX [Suspect]
     Indication: MULTIPLE SCLEROSIS
     Dosage: 30 UG;Q;W; IM
     Route: 030
     Dates: end: 20040209

REACTIONS (11)
  - ASTHENIA [None]
  - BLOOD CHOLESTEROL INCREASED [None]
  - CARDIAC OPERATION [None]
  - CAROTID ARTERY ATHEROMA [None]
  - CAROTID ARTERY STENOSIS [None]
  - EMBOLIC STROKE [None]
  - HYPERTENSION [None]
  - LACUNAR INFARCTION [None]
  - MYOCARDIAL INFARCTION [None]
  - POST PROCEDURAL COMPLICATION [None]
  - SENSORY DISTURBANCE [None]
